FAERS Safety Report 9669577 (Version 1)
Quarter: 2013Q4

REPORT INFORMATION
  Report Type: Spontaneous
  Country: US (occurrence: US)
  Receive Date: 20131105
  Receipt Date: 20131105
  Transmission Date: 20140711
  Serious: Yes (Hospitalization)
  Sender: FDA-Public Use
  Company Number: PHHY2013US123048

PATIENT
  Sex: Male

DRUGS (3)
  1. DAPTOMYCIN [Suspect]
     Indication: BACTERAEMIA
     Dosage: 8 MG/KG, QD
     Route: 042
  2. VANCOMYCIN [Suspect]
     Indication: BACTERAEMIA
     Route: 042
  3. PIPERACILLIN/TAZOBACTAM [Concomitant]

REACTIONS (11)
  - Osteomyelitis bacterial [Recovered/Resolved]
  - Endocarditis [Recovered/Resolved]
  - Leukocytosis [Recovered/Resolved]
  - Staphylococcal infection [Recovered/Resolved]
  - Arthralgia [Recovered/Resolved]
  - Bacteraemia [Recovered/Resolved]
  - Bone abscess [Recovered/Resolved]
  - Retroperitoneal abscess [Recovered/Resolved]
  - Pyrexia [Recovered/Resolved]
  - Treatment failure [Unknown]
  - Drug resistance [Unknown]
